FAERS Safety Report 10565017 (Version 1)
Quarter: 2014Q4

REPORT INFORMATION
  Report Type: Spontaneous
  Country: CA (occurrence: None)
  Receive Date: 20141103
  Receipt Date: 20141103
  Transmission Date: 20150529
  Serious: Yes (Death)
  Sender: FDA-Public Use
  Company Number: 2014CA009216

PATIENT
  Age: 76 Year
  Sex: Male

DRUGS (10)
  1. ALENDRONATE(ALENDRONATE SODIUM) [Concomitant]
     Active Substance: ALENDRONATE SODIUM
  2. ELIGARD [Suspect]
     Active Substance: LEUPROLIDE ACETATE
     Indication: PROSTATE CANCER
     Dosage: ONCE EVERY 5 MONTHS,
     Route: 058
  3. CALCIUM [Concomitant]
     Active Substance: CALCIUM
  4. IRON [Concomitant]
     Active Substance: IRON
  5. PANTOPRAZOLE [Concomitant]
     Active Substance: PANTOPRAZOLE SODIUM
  6. PAROXETINE [Concomitant]
     Active Substance: PAROXETINE\PAROXETINE HYDROCHLORIDE
  7. PLAVIX(CLOPIDOGREL BISULFATE) [Concomitant]
  8. VITAMIN D NOS(VITAMIN D NOS) [Concomitant]
  9. GABAPENTIN. [Concomitant]
     Active Substance: GABAPENTIN
  10. CASODEX(BICALUTAMIDE) [Concomitant]

REACTIONS (2)
  - Sepsis [None]
  - Leukaemia [None]
